FAERS Safety Report 10226756 (Version 2)
Quarter: 2014Q2

REPORT INFORMATION
  Report Type: Spontaneous
  Country: US (occurrence: US)
  Receive Date: 20140610
  Receipt Date: 20140612
  Transmission Date: 20141212
  Serious: Yes (Other)
  Sender: FDA-Public Use
  Company Number: US-ROCHE-1416080

PATIENT
  Age: 72 Year
  Sex: Male

DRUGS (14)
  1. XOLAIR [Suspect]
     Indication: ASTHMA
     Route: 058
     Dates: start: 201401, end: 20140604
  2. ASA [Concomitant]
     Route: 065
  3. CARDIZEM [Concomitant]
     Route: 065
  4. CPAP [Concomitant]
  5. DIGOXIN [Concomitant]
     Route: 065
  6. DIOVAN [Concomitant]
     Route: 065
  7. FLOMAX (UNITED STATES) [Concomitant]
     Route: 065
  8. LASIX [Concomitant]
     Route: 065
  9. LIPITOR [Concomitant]
     Route: 065
  10. MUCINEX [Concomitant]
     Route: 065
  11. OXYGEN [Concomitant]
     Dosage: 3L/CC
     Route: 065
  12. SPIRIVA [Concomitant]
     Route: 065
  13. SYMBICORT [Concomitant]
     Dosage: 160/4.5
     Route: 065
  14. XOPENEX HFA [Concomitant]

REACTIONS (5)
  - Rash [Recovered/Resolved]
  - Pruritus [Recovered/Resolved]
  - Dyspnoea [Recovered/Resolved]
  - Fatigue [Recovered/Resolved]
  - Heart rate decreased [Recovered/Resolved]
